FAERS Safety Report 10768883 (Version 3)
Quarter: 2015Q2

REPORT INFORMATION
  Report Type: Report from Study
  Country: NZ (occurrence: NZ)
  Receive Date: 20150206
  Receipt Date: 20150530
  Transmission Date: 20150821
  Serious: Yes (Other)
  Sender: FDA-Public Use
  Company Number: NZ-ABBVIE-14P-118-1228062-00

PATIENT
  Age: 20 Year
  Sex: Female

DRUGS (3)
  1. HUMIRA [Suspect]
     Active Substance: ADALIMUMAB
     Route: 058
  2. HUMIRA [Suspect]
     Active Substance: ADALIMUMAB
     Indication: CROHN^S DISEASE
     Route: 065
     Dates: start: 201207
  3. 6-MP [Concomitant]
     Active Substance: MERCAPTOPURINE
     Indication: PRODUCT USED FOR UNKNOWN INDICATION

REACTIONS (11)
  - Abdominal adhesions [Unknown]
  - Unevaluable event [Recovered/Resolved]
  - Cytomegalovirus hepatitis [Recovered/Resolved]
  - Drug ineffective [Recovering/Resolving]
  - Small intestinal stenosis [Unknown]
  - Malaise [Unknown]
  - Blood albumin increased [Unknown]
  - Pain [Recovering/Resolving]
  - Intestinal fibrosis [Unknown]
  - C-reactive protein decreased [Unknown]
  - Inflammatory marker increased [Recovering/Resolving]

NARRATIVE: CASE EVENT DATE: 201405
